FAERS Safety Report 24039765 (Version 1)
Quarter: 2024Q3

REPORT INFORMATION
  Report Type: Spontaneous
  Country: IT (occurrence: IT)
  Receive Date: 20240702
  Receipt Date: 20240702
  Transmission Date: 20241017
  Serious: Yes (Death, Other)
  Sender: RANBAXY
  Company Number: None

PATIENT
  Age: 63 Year
  Sex: Male

DRUGS (3)
  1. MORPHINE [Suspect]
     Active Substance: MORPHINE
     Indication: Palliative care
     Dosage: 4 MG, TOTAL 1
     Route: 040
     Dates: start: 201311
  2. METHYLPREDNISOLONE [Suspect]
     Active Substance: METHYLPREDNISOLONE
     Indication: Palliative care
     Dosage: 40 MG, TOTAL 1
     Route: 040
     Dates: start: 201311
  3. SALINE [Concomitant]
     Active Substance: SODIUM CHLORIDE
     Indication: Palliative care
     Dosage: UNK
     Route: 040
     Dates: start: 201311

REACTIONS (1)
  - Acute respiratory failure [Fatal]
